FAERS Safety Report 5235211-9 (Version None)
Quarter: 2007Q1

REPORT INFORMATION
  Report Type: 
  Country: None (occurrence: None)
  Receive Date: 20070207
  Receipt Date: 20070207
  Transmission Date: 20070707
  Serious: Yes (Life-Threatening, Hospitalization, Other)
  Sender: FDA-Public Use
  Company Number: None

PATIENT
  Age: 15 Year
  Sex: Male
  Weight: 51.7101 kg

DRUGS (1)
  1. TOPAMAX SPRINKLE [Suspect]
     Indication: MIGRAINE
     Dosage: 15 MX 1X DAY MOUTH
     Route: 048
     Dates: start: 20060201

REACTIONS (2)
  - DYSPNOEA [None]
  - THROAT TIGHTNESS [None]
